FAERS Safety Report 13619271 (Version 2)
Quarter: 2017Q2

REPORT INFORMATION
  Report Type: Spontaneous
  Country: US (occurrence: US)
  Receive Date: 20170606
  Receipt Date: 20170607
  Transmission Date: 20170830
  Serious: No
  Sender: FDA-Public Use
  Company Number: US-PURDUE-USA-2016-0132129

PATIENT
  Age: 33 Year
  Sex: Male

DRUGS (1)
  1. BUTRANS [Suspect]
     Active Substance: BUPRENORPHINE
     Indication: PAIN MANAGEMENT
     Dosage: 10 MCG/HR, WEEKLY
     Route: 062
     Dates: start: 201604, end: 20160706

REACTIONS (7)
  - Application site erythema [Not Recovered/Not Resolved]
  - Haemorrhage [Not Recovered/Not Resolved]
  - Application site irritation [Not Recovered/Not Resolved]
  - Secretion discharge [Not Recovered/Not Resolved]
  - Peripheral swelling [Not Recovered/Not Resolved]
  - Application site pain [Not Recovered/Not Resolved]
  - Application site vesicles [Not Recovered/Not Resolved]

NARRATIVE: CASE EVENT DATE: 20160615
